FAERS Safety Report 24528383 (Version 2)
Quarter: 2024Q4

REPORT INFORMATION
  Report Type: Spontaneous
  Country: PL (occurrence: PL)
  Receive Date: 20241021
  Receipt Date: 20241028
  Transmission Date: 20250115
  Serious: Yes (Hospitalization, Other)
  Sender: BAYER HEALTHCARE PHARMACEUTICALS INC.
  Company Number: PL-BAYER-2024A142161

PATIENT
  Age: 68 Year
  Sex: Female
  Weight: 60 kg

DRUGS (1)
  1. ULTRAVIST [Suspect]
     Active Substance: IOPROMIDE
     Indication: Computerised tomogram thorax
     Dosage: 90 ML, ONCE
     Route: 042
     Dates: start: 20240927, end: 20240927

REACTIONS (6)
  - Rash [Recovering/Resolving]
  - Cheilitis [Recovering/Resolving]
  - Seizure [Recovering/Resolving]
  - Erythema [Recovering/Resolving]
  - Conjunctival oedema [Recovering/Resolving]
  - Lip swelling [Recovering/Resolving]

NARRATIVE: CASE EVENT DATE: 20240927
